FAERS Safety Report 5090734-0 (Version None)
Quarter: 2006Q3

REPORT INFORMATION
  Report Type: 
  Country: None (occurrence: None)
  Receive Date: 20060823
  Receipt Date: 20060620
  Transmission Date: 20061208
  Serious: Yes (Hospitalization, Other)
  Sender: FDA-Public Use
  Company Number: 2006-06-1310

PATIENT
  Sex: Female

DRUGS (4)
  1. INTRON A [Suspect]
     Indication: MALIGNANT MELANOMA
     Dosage: 20 MIU TIW SUBCUTANEOUS
     Route: 058
     Dates: start: 20051107, end: 20060614
  2. FAVISTAN [Suspect]
     Indication: HYPERTHYROIDISM
     Dosage: 20 MG QD ORAL
     Route: 048
     Dates: start: 20060508, end: 20060617
  3. IBUPROFEN TABLETS [Concomitant]
  4. ASPIRIN PLUS C TABLETS [Concomitant]

REACTIONS (5)
  - AGRANULOCYTOSIS [None]
  - AUTOIMMUNE THYROIDITIS [None]
  - C-REACTIVE PROTEIN INCREASED [None]
  - HYPERTHYROIDISM [None]
  - PYREXIA [None]
